FAERS Safety Report 6217813-6 (Version None)
Quarter: 2009Q2

REPORT INFORMATION
  Report Type: 
  Country: None (occurrence: None)
  Receive Date: 20090604
  Receipt Date: 20090604
  Transmission Date: 20091009
  Serious: Yes (Life-Threatening, Hospitalization)
  Sender: FDA-Public Use
  Company Number: None

PATIENT
  Age: 48 Year
  Sex: Male

DRUGS (6)
  1. AMBIEN [Suspect]
     Indication: INSOMNIA
     Dosage: 10 MG EVERY NIGHT PO
     Route: 048
     Dates: start: 20080406, end: 20090523
  2. SERTRALINE HCL [Concomitant]
  3. WELLBUTRIN XL [Concomitant]
  4. ZANAFLEX [Concomitant]
  5. OXYCODONE [Concomitant]
  6. SEROQUEL [Concomitant]

REACTIONS (1)
  - HALLUCINATION, VISUAL [None]
